FAERS Safety Report 5876223-1 (Version None)
Quarter: 2008Q3

REPORT INFORMATION
  Report Type: 
  Country: None (occurrence: None)
  Receive Date: 20080908
  Receipt Date: 20080827
  Transmission Date: 20090109
  Serious: Yes (Other)
  Sender: FDA-Public Use
  Company Number: 2008AL009905

PATIENT
  Age: 74 Year
  Sex: Female
  Weight: 51.7101 kg

DRUGS (1)
  1. DIGOXIN [Suspect]
     Indication: CARDIAC DISORDER
     Dosage: 0.25 MG,QD,PO
     Route: 048

REACTIONS (5)
  - ABASIA [None]
  - ANXIETY [None]
  - DIZZINESS [None]
  - MALAISE [None]
  - VOMITING [None]
